FAERS Safety Report 8091099-2 (Version None)
Quarter: 2012Q1

REPORT INFORMATION
  Report Type: 
  Country: None (occurrence: None)
  Receive Date: 20120129
  Receipt Date: 20111020
  Transmission Date: 20120608
  Serious: No
  Sender: FDA-Public Use
  Company Number: US-ABBOTT-11P-163-0867076-00

PATIENT
  Sex: Female
  Weight: 77.18 kg

DRUGS (5)
  1. PREDNISONE TAB [Concomitant]
     Indication: ARTHRALGIA
     Dosage: WEANING
  2. HUMIRA [Suspect]
     Indication: ARTHRITIS
     Dates: start: 20110601
  3. LEVOTHYROXINE SODIUM [Concomitant]
     Indication: HYPOTHYROIDISM
  4. VITAMIN TAB [Concomitant]
     Indication: VITAMIN SUPPLEMENTATION
  5. CYMBALTA [Concomitant]
     Indication: DEPRESSION

REACTIONS (5)
  - INAPPROPRIATE SCHEDULE OF DRUG ADMINISTRATION [None]
  - INJECTION SITE URTICARIA [None]
  - ARTHRITIS [None]
  - PRURITUS [None]
  - URTICARIA [None]
